FAERS Safety Report 4749793-4 (Version None)
Quarter: 2005Q3

REPORT INFORMATION
  Report Type: 
  Country: None (occurrence: None)
  Receive Date: 20050819
  Receipt Date: 20050819
  Transmission Date: 20060218
  Serious: Yes (Other)
  Sender: FDA-Public Use
  Company Number: None

PATIENT
  Sex: Male
  Weight: 70.3075 kg

DRUGS (2)
  1. LASIX [Suspect]
     Indication: HYPERTENSION
     Dosage: 1 BY MOUTH Q DAY
     Dates: start: 20040101
  2. K-DUR 20 [Suspect]
     Indication: HYPOKALAEMIA
     Dosage: 1 BY MOUTH Q DAY
     Dates: start: 20040101

REACTIONS (3)
  - NAUSEA [None]
  - PHARMACEUTICAL PRODUCT COMPLAINT [None]
  - VOMITING [None]
